FAERS Safety Report 6762940-8 (Version None)
Quarter: 2010Q2

REPORT INFORMATION
  Report Type: 
  Country: None (occurrence: None)
  Receive Date: 20100609
  Receipt Date: 20100527
  Transmission Date: 20101027
  Serious: Yes (Other)
  Sender: FDA-Public Use
  Company Number: US-PFIZER INC-2010067309

PATIENT
  Sex: Female

DRUGS (7)
  1. NEURONTIN [Suspect]
     Indication: PAIN
     Dosage: UNK
     Route: 048
  2. PLAVIX [Suspect]
     Indication: CORONARY ARTERY BYPASS
     Dosage: 75 MG, 1X/DAY
     Dates: start: 20001106
  3. PERCOCET [Suspect]
     Indication: PAIN
     Dosage: UNK
  4. VICODIN [Suspect]
     Indication: PAIN
     Dosage: UNK
  5. DARVOCET-N 100 [Suspect]
     Indication: PAIN
     Dosage: UNK
  6. ACETYLSALICYLIC ACID [Concomitant]
  7. DEXLANSOPRAZOLE [Concomitant]

REACTIONS (9)
  - ABDOMINAL PAIN [None]
  - ABDOMINAL PAIN UPPER [None]
  - ARRHYTHMIA [None]
  - ASTHENIA [None]
  - CONSTIPATION [None]
  - DECREASED APPETITE [None]
  - NAUSEA [None]
  - OSTEOARTHRITIS [None]
  - WHITE BLOOD CELL COUNT DECREASED [None]
